FAERS Safety Report 14311451 (Version 1)
Quarter: 2017Q4

REPORT INFORMATION
  Report Type: Spontaneous
  Country: US (occurrence: US)
  Receive Date: 20171221
  Receipt Date: 20171221
  Transmission Date: 20180321
  Serious: No
  Sender: FDA-Public Use
  Company Number: US-NOVEN PHARMACEUTICALS, INC.-US2017000966

PATIENT

DRUGS (11)
  1. MINIVELLE [Suspect]
     Active Substance: ESTRADIOL
     Dosage: 0.075 MG, UNKNOWN
     Route: 062
     Dates: end: 2017
  2. GABAPENTIN. [Suspect]
     Active Substance: GABAPENTIN
     Dosage: 600 MG, UNKNOWN
     Route: 065
     Dates: start: 20170303, end: 20170401
  3. GABAPENTIN. [Suspect]
     Active Substance: GABAPENTIN
     Dosage: 1200 MG, UNKNOWN
     Route: 065
     Dates: start: 20170411, end: 201705
  4. MINIVELLE [Suspect]
     Active Substance: ESTRADIOL
     Indication: HOT FLUSH
     Dosage: 0.0375 MG, UNK
     Route: 062
  5. GABAPENTIN. [Suspect]
     Active Substance: GABAPENTIN
     Dosage: 600 MG, UNK
     Route: 065
     Dates: start: 201705, end: 201705
  6. GABAPENTIN. [Suspect]
     Active Substance: GABAPENTIN
     Dosage: 300 MG, UNK
     Route: 065
     Dates: start: 201705, end: 201705
  7. AMITRIPTYLINE HCL [Concomitant]
     Active Substance: AMITRIPTYLINE
     Indication: MIGRAINE
  8. GABAPENTIN. [Suspect]
     Active Substance: GABAPENTIN
     Indication: MIGRAINE
     Dosage: 300 MG, UNKNOWN
     Route: 065
     Dates: start: 20170131, end: 20170302
  9. GABAPENTIN. [Suspect]
     Active Substance: GABAPENTIN
     Dosage: 900 MG, UNK
     Route: 065
     Dates: start: 201705, end: 201705
  10. PROGESTERONE. [Concomitant]
     Active Substance: PROGESTERONE
  11. GABAPENTIN. [Suspect]
     Active Substance: GABAPENTIN
     Dosage: 900 MG, UNK
     Route: 065
     Dates: start: 20170402, end: 20170410

REACTIONS (4)
  - Hot flush [Unknown]
  - Wrong technique in product usage process [Recovered/Resolved]
  - Therapy cessation [Not Recovered/Not Resolved]
  - Product adhesion issue [Recovered/Resolved]

NARRATIVE: CASE EVENT DATE: 2017
